FAERS Safety Report 12876969 (Version 2)
Quarter: 2017Q1

REPORT INFORMATION
  Report Type: Spontaneous
  Country: CA (occurrence: CA)
  Receive Date: 20161024
  Receipt Date: 20170103
  Transmission Date: 20170428
  Serious: Yes (Other)
  Sender: FDA-Public Use
  Company Number: CA-GLAXOSMITHKLINE-CA2016GSK154871

PATIENT
  Age: 57 Year
  Sex: Female

DRUGS (1)
  1. NUCALA [Suspect]
     Active Substance: MEPOLIZUMAB
     Indication: ASTHMA
     Dosage: 100 MG, Z
     Route: 042
     Dates: start: 20161007

REACTIONS (7)
  - Haemorrhage subcutaneous [Unknown]
  - Contusion [Unknown]
  - Vulvovaginal pain [Unknown]
  - Peripheral swelling [Unknown]
  - Swelling [Unknown]
  - Fluid retention [Unknown]
  - Vaginal odour [Unknown]

NARRATIVE: CASE EVENT DATE: 201610
